FAERS Safety Report 21245865 (Version 1)
Quarter: 2022Q3

REPORT INFORMATION
  Report Type: Spontaneous
  Country: JP (occurrence: JP)
  Receive Date: 20220824
  Receipt Date: 20220824
  Transmission Date: 20221027
  Serious: Yes (Other)
  Sender: FDA-Public Use
  Company Number: JP-MLMSERVICE-20220815-3734022-1

PATIENT
  Age: 35 Year
  Sex: Female
  Weight: 56 kg

DRUGS (7)
  1. DEXAMETHASONE [Suspect]
     Active Substance: DEXAMETHASONE
     Indication: Prophylaxis of nausea and vomiting
     Route: 040
  2. ROCURONIUM [Concomitant]
     Active Substance: ROCURONIUM BROMIDE
     Indication: General anaesthesia
     Dosage: SEQUENTIAL ADMINISTRATION
  3. FENTANYL [Concomitant]
     Active Substance: FENTANYL
     Indication: General anaesthesia
     Dosage: SEQUENTIAL ADMINISTRATION
  4. OXYGEN [Concomitant]
     Active Substance: OXYGEN
     Indication: Mechanical ventilation
     Dosage: SEQUENTIAL ADMINISTRATION
  5. PROPOFOL [Concomitant]
     Active Substance: PROPOFOL
     Indication: General anaesthesia
     Dosage: SEQUENTIAL ADMINISTRATION
  6. REMIFENTANIL [Concomitant]
     Active Substance: REMIFENTANIL
     Indication: General anaesthesia
     Dosage: SEQUENTIAL ADMINISTRATION
  7. DOXAZOSIN [Concomitant]
     Active Substance: DOXAZOSIN MESYLATE
     Indication: Blood pressure management

REACTIONS (1)
  - Hypertension [Recovered/Resolved]
